FAERS Safety Report 18565069 (Version 1)
Quarter: 2020Q4

REPORT INFORMATION
  Report Type: Spontaneous
  Country: US (occurrence: US)
  Receive Date: 20201006
  Receipt Date: 20201006
  Transmission Date: 20210114
  Serious: Yes (Other)
  Sender: FDA-Public Use
  Company Number: None

PATIENT
  Age: 3 Decade
  Sex: Female

DRUGS (6)
  1. LOPINAVIR [Suspect]
     Active Substance: LOPINAVIR
     Indication: COVID-19
     Route: 048
  2. RECOMBINANT HUMAN INTERFERON ALPHA 1B [Suspect]
     Active Substance: INTERFERON ALFA-1B
     Indication: COVID-19
     Route: 055
     Dates: start: 2020
  3. QINGFEI PAIDU DECOCTION [Suspect]
     Active Substance: HERBALS
     Indication: COVID-19
     Dates: start: 2020
  4. UMIFENOVIR. [Suspect]
     Active Substance: UMIFENOVIR
     Indication: COVID-19
     Route: 048
     Dates: start: 2020
  5. LIANHUA QINGWEN [Suspect]
     Active Substance: HERBALS
     Indication: COVID-19
     Dates: start: 2020
  6. HYDROXYCHLOROQUINE [Suspect]
     Active Substance: HYDROXYCHLOROQUINE
     Indication: COVID-19
     Route: 048
     Dates: start: 2020

REACTIONS (7)
  - SARS-CoV-2 antibody test positive [None]
  - Tonsillitis [None]
  - Oropharyngeal pain [None]
  - Treatment failure [None]
  - Lung opacity [None]
  - Cough [None]
  - Dyspnoea [None]
